FAERS Safety Report 8342819-0 (Version None)
Quarter: 2012Q1

REPORT INFORMATION
  Report Type: 
  Country: None (occurrence: None)
  Receive Date: 20120330
  Receipt Date: 20010810
  Transmission Date: 20120608
  Serious: Yes (Hospitalization)
  Sender: FDA-Public Use
  Company Number: PHEH2001US06833

PATIENT
  Age: 89 Year
  Sex: Male

DRUGS (8)
  1. NORVASC [Concomitant]
  2. PRAVACHOL [Concomitant]
  3. EXELON [Suspect]
     Dosage: 4.5 MG, BID
     Dates: start: 20010212, end: 20010705
  4. MULTIVITAMINS (THIAMINE HYDROCHLORIDE, PANTHENOL, RIBOF) [Concomitant]
  5. GLYBURIDE [Concomitant]
  6. PRILOSEC [Concomitant]
  7. PLAVIX [Concomitant]
  8. TUSSIONEX [Concomitant]

REACTIONS (1)
  - SYNCOPE [None]
